FAERS Safety Report 25493131 (Version 5)
Quarter: 2025Q3

REPORT INFORMATION
  Report Type: Report from Study
  Country: BR (occurrence: BR)
  Receive Date: 20250630
  Receipt Date: 20250716
  Transmission Date: 20251020
  Serious: Yes (Other)
  Sender: NOVARTIS
  Company Number: BR-002147023-NVSC2025BR077522

PATIENT
  Sex: Female
  Weight: 94 kg

DRUGS (1)
  1. TASIGNA [Suspect]
     Active Substance: NILOTINIB
     Indication: Chronic myeloid leukaemia
     Dosage: 400MG, BID (400MG 07:00 AM AND 400MG 07:00 PM)
     Route: 065
     Dates: start: 201611

REACTIONS (17)
  - Hepatotoxicity [Unknown]
  - Rheumatoid arthritis [Recovering/Resolving]
  - Fatigue [Unknown]
  - Pain [Recovering/Resolving]
  - Cerebrovascular accident [Unknown]
  - Gait disturbance [Unknown]
  - Diabetes mellitus [Not Recovered/Not Resolved]
  - Muscular weakness [Recovering/Resolving]
  - Myalgia [Recovering/Resolving]
  - Muscle spasms [Not Recovered/Not Resolved]
  - Hypertension [Not Recovered/Not Resolved]
  - Glucose tolerance impaired [Unknown]
  - Arthralgia [Unknown]
  - Diplopia [Not Recovered/Not Resolved]
  - Fibromyalgia [Recovering/Resolving]
  - Hyperhidrosis [Not Recovered/Not Resolved]
  - Therapeutic response decreased [Recovering/Resolving]

NARRATIVE: CASE EVENT DATE: 20220101
